FAERS Safety Report 21007528 (Version 2)
Quarter: 2022Q3

REPORT INFORMATION
  Report Type: Report from Study
  Country: ZA (occurrence: ZA)
  Receive Date: 20220626
  Receipt Date: 20220719
  Transmission Date: 20221026
  Serious: Yes (Death)
  Sender: FDA-Public Use
  Company Number: ZA-ABBVIE-22K-143-4447508-00

PATIENT
  Age: 55 Year
  Sex: Male
  Weight: 70 kg

DRUGS (1)
  1. VENCLEXTA [Suspect]
     Active Substance: VENETOCLAX
     Indication: Chronic lymphocytic leukaemia
     Dosage: 5MG/D
     Route: 048
     Dates: start: 20220613

REACTIONS (1)
  - Death [Fatal]

NARRATIVE: CASE EVENT DATE: 20220621
